FAERS Safety Report 6384686-0 (Version None)
Quarter: 2009Q4

REPORT INFORMATION
  Report Type: 
  Country: None (occurrence: None)
  Receive Date: 20091001
  Receipt Date: 20090922
  Transmission Date: 20100525
  Serious: Yes (Hospitalization)
  Sender: FDA-Public Use
  Company Number: US-ASTRAZENECA-2009SE14498

PATIENT
  Age: 46 Year
  Sex: Male
  Weight: 122.5 kg

DRUGS (6)
  1. SYMBICORT [Suspect]
     Indication: ASTHMA
     Dosage: 160/4.5 MCG - 2 PUFFS
     Route: 055
     Dates: start: 20090821
  2. LEVOTHYROXINE SODIUM [Concomitant]
  3. PROZAC [Concomitant]
  4. DOXAZOSIN MESYLATE [Concomitant]
  5. MELOXICAM [Concomitant]
  6. VITAMINS [Concomitant]

REACTIONS (1)
  - LOSS OF CONSCIOUSNESS [None]
